FAERS Safety Report 8443481-9 (Version None)
Quarter: 2012Q2

REPORT INFORMATION
  Report Type: 
  Country: None (occurrence: None)
  Receive Date: 20120618
  Receipt Date: 20120604
  Transmission Date: 20120825
  Serious: Yes (Hospitalization)
  Sender: FDA-Public Use
  Company Number: CA-JNJFOC-20120601986

PATIENT
  Sex: Male
  Weight: 62.2 kg

DRUGS (3)
  1. VITAMIN B-12 [Concomitant]
     Route: 065
  2. REMICADE [Suspect]
     Indication: CROHN'S DISEASE
     Route: 042
     Dates: start: 20120221
  3. IMURAN [Concomitant]
     Route: 065

REACTIONS (1)
  - INTESTINAL STENOSIS [None]
